FAERS Safety Report 9979453 (Version 2)
Quarter: 2014Q1

REPORT INFORMATION
  Report Type: Report from Study
  Country: US (occurrence: US)
  Receive Date: 20140306
  Receipt Date: 20140306
  Transmission Date: 20141002
  Serious: No
  Sender: FDA-Public Use
  Company Number: US-ABBVIE-13P-163-1161102-00

PATIENT
  Age: 29 Year
  Sex: Male

DRUGS (4)
  1. HUMIRA [Suspect]
     Indication: CROHN^S DISEASE
     Dates: start: 20130824, end: 20130824
  2. HUMIRA [Suspect]
     Dates: start: 20130908, end: 20130908
  3. HUMIRA [Suspect]
     Dates: start: 20130922, end: 20130922
  4. LIALDA [Concomitant]
     Indication: CROHN^S DISEASE

REACTIONS (3)
  - Pyrexia [Recovered/Resolved]
  - Headache [Recovered/Resolved]
  - Pruritus [Recovered/Resolved]
